FAERS Safety Report 22246682 (Version 1)
Quarter: 2023Q2

REPORT INFORMATION
  Report Type: Report from Study
  Country: CA (occurrence: CA)
  Receive Date: 20230424
  Receipt Date: 20230424
  Transmission Date: 20230721
  Serious: Yes (Hospitalization)
  Sender: FDA-Public Use
  Company Number: CA-MYLANLABS-2022M1051968

PATIENT
  Age: 70 Year
  Sex: Female

DRUGS (1)
  1. HULIO [Suspect]
     Active Substance: ADALIMUMAB-FKJP
     Indication: Rheumatoid arthritis
     Dosage: 40 MILLIGRAM, Q2W, BIWEEKLY
     Route: 058
     Dates: start: 20220628

REACTIONS (3)
  - Hospitalisation [Recovered/Resolved]
  - Fall [Unknown]
  - Ankle fracture [Unknown]
